FAERS Safety Report 20779387 (Version 2)
Quarter: 2022Q2

REPORT INFORMATION
  Report Type: Report from Study
  Country: US (occurrence: None)
  Receive Date: 20220503
  Receipt Date: 20220610
  Transmission Date: 20220721
  Serious: Yes (Death)
  Sender: FDA-Public Use
  Company Number: 2022A167791

PATIENT
  Age: 25835 Day
  Sex: Male
  Weight: 99.8 kg

DRUGS (1)
  1. SAPHNELO [Suspect]
     Active Substance: ANIFROLUMAB-FNIA
     Indication: Systemic lupus erythematosus
     Route: 042
     Dates: start: 20220401

REACTIONS (1)
  - Death [Fatal]

NARRATIVE: CASE EVENT DATE: 20220427
